FAERS Safety Report 10922501 (Version 1)
Quarter: 2015Q1

REPORT INFORMATION
  Report Type: Spontaneous
  Country: US (occurrence: None)
  Receive Date: 20150312
  Receipt Date: 20150312
  Transmission Date: 20150721
  Serious: Yes (Death)
  Sender: FDA-Public Use
  Company Number: 1713747-2014-999113

PATIENT
  Age: 82 Year
  Sex: Male

DRUGS (23)
  1. ASPIRIN. [Concomitant]
     Active Substance: ASPIRIN
  2. GRANUFLO MEDICATIONS [Concomitant]
  3. OPTIFLUX DIALYZER [Concomitant]
     Active Substance: DEVICE
  4. NATURALYTE [Concomitant]
     Active Substance: ACETIC ACID\SODIUM ACETATE
  5. ISOSORBIDE DINITRATE (ISORDIL) [Concomitant]
  6. MIRALAX [Concomitant]
     Active Substance: POLYETHYLENE GLYCOL 3350
  7. ROCALTROL [Concomitant]
     Active Substance: CALCITRIOL
  8. 0.9% SODIUM CHLORIDE INJECTION, USP IN MINI-BAG PLUS CONTAINER [Suspect]
     Active Substance: SODIUM CHLORIDE
     Indication: HAEMODIALYSIS
     Dates: start: 20140714
  9. ESOMEPRAZOLE MAGNEIUM (NEXIUM) [Concomitant]
  10. COREG [Concomitant]
     Active Substance: CARVEDILOL
  11. COLACE [Concomitant]
     Active Substance: DOCUSATE SODIUM
  12. LIPITOR [Concomitant]
     Active Substance: ATORVASTATIN CALCIUM
  13. PROBIOTIC [Concomitant]
     Active Substance: PROBIOTICS NOS
  14. NORCO [Concomitant]
     Active Substance: ACETAMINOPHEN\HYDROCODONE BITARTRATE
  15. FRESENIUS 2008T HEMODIALYSIS SYSTEM [Concomitant]
     Active Substance: DEVICE
  16. ZETIA [Concomitant]
     Active Substance: EZETIMIBE
  17. BACTROBAN [Concomitant]
     Active Substance: MUPIROCIN\MUPIROCIN CALCIUM
  18. FOLIC ACID. [Concomitant]
     Active Substance: FOLIC ACID
  19. XANAX [Concomitant]
     Active Substance: ALPRAZOLAM
  20. NOVOLOG [Concomitant]
     Active Substance: INSULIN ASPART
  21. COMBISET BLOODLINES [Concomitant]
  22. FERROUS SULFATE (IRON) [Concomitant]
  23. PLAVIX [Concomitant]
     Active Substance: CLOPIDOGREL BISULFATE

REACTIONS (7)
  - Pupil fixed [None]
  - Fall [None]
  - Dyspnoea [None]
  - Cardio-respiratory arrest [None]
  - Cardiac arrest [None]
  - Agonal rhythm [None]
  - Hypotension [None]

NARRATIVE: CASE EVENT DATE: 20140714
